FAERS Safety Report 5419061-6 (Version None)
Quarter: 2007Q3

REPORT INFORMATION
  Report Type: 
  Country: None (occurrence: None)
  Receive Date: 20070820
  Receipt Date: 20070808
  Transmission Date: 20080115
  Serious: Yes (Other)
  Sender: FDA-Public Use
  Company Number: PHMT2007CA01712

PATIENT
  Age: 74 Year
  Sex: Female

DRUGS (4)
  1. DIOVAN [Suspect]
     Indication: HYPERTENSION
     Dosage: 80 MG, QD
     Route: 048
     Dates: start: 20070525, end: 20070711
  2. ENALAPRIL MALEATE [Concomitant]
     Dosage: UNK, UNK
     Dates: start: 19800101
  3. ALDACTONE [Concomitant]
     Dates: start: 20060101
  4. METOPROLOL SUCCINATE [Concomitant]
     Dates: start: 20060101

REACTIONS (2)
  - FLUID RETENTION [None]
  - WEIGHT INCREASED [None]
